FAERS Safety Report 22256742 (Version 1)
Quarter: 2023Q2

REPORT INFORMATION
  Report Type: Spontaneous
  Country: PT (occurrence: PT)
  Receive Date: 20230426
  Receipt Date: 20230426
  Transmission Date: 20230721
  Serious: Yes (Other)
  Sender: FDA-Public Use
  Company Number: PT-009507513-2304PRT008849

PATIENT
  Age: 90 Year
  Sex: Male

DRUGS (14)
  1. PEMBROLIZUMAB [Suspect]
     Active Substance: PEMBROLIZUMAB
     Indication: Clear cell renal cell carcinoma
     Dosage: 200 MILLIGRAM, Q3W
     Dates: start: 202208
  2. AXITINIB [Suspect]
     Active Substance: AXITINIB
     Indication: Clear cell renal cell carcinoma
     Dosage: 12 MILLIGRAM, Q12H
     Dates: start: 202208, end: 2022
  3. AXITINIB [Suspect]
     Active Substance: AXITINIB
     Dosage: DOSE REDUCED, 3 MILLIGRAM Q12H
     Dates: start: 202211
  4. PANTOPRAZOLE [Concomitant]
     Active Substance: PANTOPRAZOLE
     Dosage: 20 MILLIGRAM
  5. ASPIRIN [Concomitant]
     Active Substance: ASPIRIN
     Dosage: 100 MILLIGRAM, QD
  6. FUROSEMIDE [Concomitant]
     Active Substance: FUROSEMIDE
     Dosage: 40 MILLIGRAM, QD
  7. LERCANIDIPINE [Concomitant]
     Active Substance: LERCANIDIPINE
     Dosage: 10 MILLIGRAM, QD
  8. OLMESARTAN [Concomitant]
     Active Substance: OLMESARTAN
     Dosage: 40 MILLIGRAM, QD
     Route: 048
  9. METOPROLOL [Concomitant]
     Active Substance: METOPROLOL
     Dosage: 50 MILLIGRAM, QD
     Route: 048
  10. METHYLDOPA [Concomitant]
     Active Substance: METHYLDOPA
     Dosage: 500 MILLIGRAM, Q8H
  11. ROSUVASTATIN [Concomitant]
     Active Substance: ROSUVASTATIN
     Dosage: 5 MILLIGRAM, QD
  12. ALPRAZOLAM [Concomitant]
     Active Substance: ALPRAZOLAM
     Dosage: 0.125 MILLIGRAM, QD
     Route: 048
  13. RILMENIDINE [Concomitant]
     Active Substance: RILMENIDINE
     Dosage: 1 MILLIGRAM, QD
  14. TINZAPARIN [Concomitant]
     Active Substance: TINZAPARIN
     Indication: Tumour thrombosis
     Dosage: UNK
     Dates: start: 202207, end: 202301

REACTIONS (6)
  - Neutropenia [Recovered/Resolved]
  - Malignant neoplasm progression [Unknown]
  - Epistaxis [Recovered/Resolved]
  - Therapy partial responder [Unknown]
  - Blood thyroid stimulating hormone increased [Recovered/Resolved]
  - Diarrhoea [Unknown]

NARRATIVE: CASE EVENT DATE: 20220901
